FAERS Safety Report 7762063-5 (Version None)
Quarter: 2011Q3

REPORT INFORMATION
  Report Type: 
  Country: None (occurrence: None)
  Receive Date: 20110920
  Receipt Date: 20110920
  Transmission Date: 20111222
  Serious: Yes (Other)
  Sender: FDA-Public Use
  Company Number: None

PATIENT
  Age: 80 Year
  Sex: Female

DRUGS (1)
  1. SINGULAIR [Suspect]
     Dosage: 10MG
     Route: 048
     Dates: start: 20110818, end: 20110826

REACTIONS (1)
  - MUSCLE SPASMS [None]
